FAERS Safety Report 6892628-4 (Version None)
Quarter: 2010Q3

REPORT INFORMATION
  Report Type: 
  Country: None (occurrence: None)
  Receive Date: 20100731
  Receipt Date: 20080729
  Transmission Date: 20110219
  Serious: No
  Sender: FDA-Public Use
  Company Number: US-PFIZER INC-2008064851

PATIENT
  Age: 44 Year
  Sex: Female

DRUGS (3)
  1. NEURONTIN [Suspect]
  2. GABAPENTIN [Suspect]
  3. MELOXICAM [Concomitant]

REACTIONS (1)
  - DRUG SCREEN POSITIVE [None]
